FAERS Safety Report 22607396 (Version 1)
Quarter: 2023Q2

REPORT INFORMATION
  Report Type: Spontaneous
  Country: ES (occurrence: ES)
  Receive Date: 20230616
  Receipt Date: 20230616
  Transmission Date: 20230722
  Serious: Yes (Hospitalization)
  Sender: FDA-Public Use
  Company Number: None

PATIENT
  Age: 74 Year
  Sex: Female

DRUGS (1)
  1. ACETAMINOPHEN\TRAMADOL [Suspect]
     Active Substance: ACETAMINOPHEN\TRAMADOL
     Indication: Pain
     Dosage: 1 DOSAGE FORM, EVERY 12 HRS
     Route: 048
     Dates: start: 20230520, end: 20230522

REACTIONS (3)
  - Constipation [Recovered/Resolved]
  - Faecaloma [Recovered/Resolved]
  - Rectal prolapse [Recovered/Resolved]

NARRATIVE: CASE EVENT DATE: 20230521
